FAERS Safety Report 25179605 (Version 1)
Quarter: 2025Q2

REPORT INFORMATION
  Report Type: Spontaneous
  Country: US (occurrence: US)
  Receive Date: 20250409
  Receipt Date: 20250409
  Transmission Date: 20250716
  Serious: No
  Sender: GILEAD
  Company Number: US-GILEAD-2025-0709766

PATIENT
  Sex: Male

DRUGS (1)
  1. BIKTARVY [Suspect]
     Active Substance: BICTEGRAVIR SODIUM\EMTRICITABINE\TENOFOVIR ALAFENAMIDE FUMARATE
     Indication: HIV infection
     Dosage: 50MG/200MG/25MG TABLETS, ONE TABLET DAILY
     Route: 065
     Dates: start: 2022, end: 2023

REACTIONS (2)
  - Intentional product use issue [Recovered/Resolved]
  - Product prescribing issue [Recovered/Resolved]
